FAERS Safety Report 8500505-8 (Version None)
Quarter: 2012Q3

REPORT INFORMATION
  Report Type: 
  Country: None (occurrence: None)
  Receive Date: 20120710
  Receipt Date: 20120628
  Transmission Date: 20120928
  Serious: Yes (Other)
  Sender: FDA-Public Use
  Company Number: JP-UCBSA-060732

PATIENT
  Age: 79 Year
  Sex: Male

DRUGS (1)
  1. XYZAL [Suspect]
     Route: 048

REACTIONS (3)
  - TREMOR [None]
  - DEPRESSED LEVEL OF CONSCIOUSNESS [None]
  - CEREBRAL INFARCTION [None]
